FAERS Safety Report 20595275 (Version 1)
Quarter: 2022Q1

REPORT INFORMATION
  Report Type: Report from Study
  Country: US (occurrence: US)
  Receive Date: 20220315
  Receipt Date: 20220315
  Transmission Date: 20220424
  Serious: Yes (Death)
  Sender: FDA-Public Use
  Company Number: US-NOVARTISPH-NVSC2022US058963

PATIENT
  Age: 67 Year
  Sex: Female

DRUGS (1)
  1. PROMACTA [Suspect]
     Active Substance: ELTROMBOPAG OLAMINE
     Indication: Product used for unknown indication
     Dosage: 75 MG, TID (OTHER DOSAGE: 90/30)
     Route: 048

REACTIONS (2)
  - Death [Fatal]
  - Incorrect dose administered [Unknown]
